FAERS Safety Report 5521484-1 (Version None)
Quarter: 2007Q4

REPORT INFORMATION
  Report Type: 
  Country: None (occurrence: None)
  Receive Date: 20071119
  Receipt Date: 20071108
  Transmission Date: 20080405
  Serious: Yes (Hospitalization, Other)
  Sender: FDA-Public Use
  Company Number: US-PFIZER INC-2007094589

PATIENT
  Age: 83 Year
  Sex: Female

DRUGS (2)
  1. FLUCONAZOLE [Suspect]
     Indication: OESOPHAGEAL CANDIDIASIS
     Dosage: DAILY DOSE:100MG
     Route: 048
  2. 6-MP [Interacting]

REACTIONS (2)
  - DRUG INTERACTION [None]
  - PANCYTOPENIA [None]
